FAERS Safety Report 5664312-6 (Version None)
Quarter: 2008Q1

REPORT INFORMATION
  Report Type: 
  Country: None (occurrence: None)
  Receive Date: 20080311
  Receipt Date: 20080311
  Transmission Date: 20080703
  Serious: Yes (Other)
  Sender: FDA-Public Use
  Company Number: None

PATIENT
  Age: 50 Year
  Sex: Female
  Weight: 79.3795 kg

DRUGS (2)
  1. LIPITOR [Suspect]
     Indication: CORONARY ARTERY DISEASE
     Dosage: 20 MG ONCE DAILY PO
     Route: 048
     Dates: start: 20080111, end: 20080303
  2. LIPITOR [Suspect]
     Indication: MYOCARDIAL INFARCTION
     Dosage: 20 MG ONCE DAILY PO
     Route: 048
     Dates: start: 20080111, end: 20080303

REACTIONS (1)
  - INSOMNIA [None]
